FAERS Safety Report 8426111-1 (Version None)
Quarter: 2012Q2

REPORT INFORMATION
  Report Type: 
  Country: None (occurrence: None)
  Receive Date: 20120323
  Receipt Date: 20110421
  Transmission Date: 20120825
  Serious: Yes (Hospitalization)
  Sender: FDA-Public Use
  Company Number: 163-21880-11043050

PATIENT
  Age: 66 Year
  Sex: Male
  Weight: 92.9874 kg

DRUGS (11)
  1. WARFARIN SODIUM [Concomitant]
  2. XALATAN (LATANOPROST)(UNKNOWN) [Concomitant]
  3. ACYCLOVIR (ACICLOVIR)(UNKNOWN) [Concomitant]
  4. COLACE (DOCUSATE [Concomitant]
  5. PACERONE (AMIODARONE HYDROCHLORIDE)(UNKNOWN) [Concomitant]
  6. VELCADE [Concomitant]
  7. REVLIMID [Suspect]
     Indication: MULTIPLE MYELOMA
     Dosage: 10 MG, DAILY X 21 DAYS, PO
     Route: 048
     Dates: start: 20110120
  8. STOOL SOFTENER (DOCUSATE SODIUM)(UNKNOWN) [Concomitant]
  9. LASIX [Concomitant]
  10. OMEGA (OMEGA)(UNKNOWN) [Concomitant]
  11. LISINOPRIL [Concomitant]

REACTIONS (2)
  - ATRIAL FIBRILLATION [None]
  - NEUROPATHY PERIPHERAL [None]
